FAERS Safety Report 5100707-7 (Version None)
Quarter: 2006Q3

REPORT INFORMATION
  Report Type: 
  Country: None (occurrence: None)
  Receive Date: 20060906
  Receipt Date: 20060821
  Transmission Date: 20061208
  Serious: Yes (Other)
  Sender: FDA-Public Use
  Company Number: S06-UKI-03554-01

PATIENT
  Sex: Female

DRUGS (2)
  1. CITALOPRAM HYDROBROMIDE [Suspect]
     Indication: ANXIETY
     Dosage: 20  MG QD PO
     Route: 048
     Dates: start: 20040101
  2. TEMAZEPAM [Concomitant]

REACTIONS (1)
  - DRUG INTERACTION INHIBITION [None]
